FAERS Safety Report 7426359-9 (Version None)
Quarter: 2011Q2

REPORT INFORMATION
  Report Type: 
  Country: None (occurrence: None)
  Receive Date: 20110420
  Receipt Date: 20101124
  Transmission Date: 20111010
  Serious: Yes (Other)
  Sender: FDA-Public Use
  Company Number: US-BAYER-201034342NA

PATIENT
  Age: 28 Year
  Sex: Female
  Weight: 68.027 kg

DRUGS (12)
  1. YASMIN [Suspect]
  2. OCELLA [Suspect]
     Indication: PREMENSTRUAL SYNDROME
  3. HYDROCODONE [Concomitant]
     Dosage: TAKEN AT TIME OF EVENT
  4. YASMIN [Suspect]
     Indication: PREMENSTRUAL SYNDROME
  5. ANALGESICS [Concomitant]
     Indication: HEADACHE
  6. OCELLA [Suspect]
     Indication: ORAL CONTRACEPTION
     Route: 048
     Dates: start: 20100601, end: 20100701
  7. ANALGESICS [Concomitant]
     Indication: BACK PAIN
  8. YASMIN [Suspect]
     Indication: ORAL CONTRACEPTION
     Route: 048
     Dates: start: 20070701, end: 20080101
  9. OCELLA [Suspect]
  10. NSAID'S [Concomitant]
     Indication: BACK PAIN
  11. NSAID'S [Concomitant]
     Indication: HEADACHE
  12. NAPROSYN [Concomitant]
     Dosage: TAKEN AT TIME OF EVENT

REACTIONS (6)
  - PAIN IN EXTREMITY [None]
  - VENOUS INSUFFICIENCY [None]
  - SENSATION OF HEAVINESS [None]
  - VARICOSE VEIN [None]
  - THROMBOPHLEBITIS [None]
  - PHLEBITIS [None]
